FAERS Safety Report 4811353-4 (Version None)
Quarter: 2005Q4

REPORT INFORMATION
  Report Type: 
  Country: None (occurrence: None)
  Receive Date: 20051026
  Receipt Date: 20051026
  Transmission Date: 20060501
  Serious: Yes (Other)
  Sender: FDA-Public Use
  Company Number: None

PATIENT
  Age: 62 Year
  Sex: Male
  Weight: 111 kg

DRUGS (1)
  1. TRAVAPROST OPTH SOL'M 0.004% [Suspect]
     Indication: INTRAOCULAR PRESSURE INCREASED
     Dosage: 1 DROP OU QHS
     Dates: start: 20050504, end: 20050614

REACTIONS (2)
  - EYE DISORDER [None]
  - PIGMENTATION DISORDER [None]
